FAERS Safety Report 8275108-3 (Version None)
Quarter: 2012Q2

REPORT INFORMATION
  Report Type: 
  Country: None (occurrence: None)
  Receive Date: 20120411
  Receipt Date: 20120404
  Transmission Date: 20120825
  Serious: Yes (Hospitalization, Other)
  Sender: FDA-Public Use
  Company Number: US-CELGENEUS-163-21880-12031200

PATIENT
  Sex: Male

DRUGS (30)
  1. DIAZEPAM [Concomitant]
     Dosage: 2 MILLIGRAM
     Route: 048
  2. METOPROLOL TARTRATE [Concomitant]
     Dosage: 25 MILLIGRAM
     Route: 048
  3. PROCHLORPERAZINE MALEATE [Concomitant]
     Dosage: 10 MILLIGRAM
     Route: 048
  4. ZOMETA [Concomitant]
     Route: 065
  5. FERROUS FUMARATE [Concomitant]
     Dosage: 324 MILLIGRAM
     Route: 065
  6. HUMULIN R [Concomitant]
     Dosage: 70/30
     Route: 065
  7. CELEXA [Concomitant]
     Route: 065
  8. DEXAMETHASONE [Concomitant]
     Dosage: 4 MILLIGRAM
     Route: 048
  9. LOVASTATIN [Concomitant]
     Dosage: 40 MILLIGRAM
     Route: 065
  10. CEPHALEXIN [Concomitant]
     Route: 065
  11. NITROGLYCERIN [Concomitant]
     Dosage: .4 MILLIGRAM
     Route: 060
  12. OXYCONTIN [Concomitant]
     Dosage: 15 MILLIGRAM
     Route: 048
  13. POTASSIUM CHLORIDE [Concomitant]
     Dosage: 20 MILLIEQUIVALENTS
     Route: 048
  14. OXYCODONE HCL [Concomitant]
     Dosage: 15 MILLIGRAM
     Route: 065
  15. ASPIRIN [Concomitant]
     Dosage: 81 MILLIGRAM
     Route: 065
  16. HUMALOG [Concomitant]
     Dosage: 2-15 UNITS
     Route: 058
  17. FLORINEF [Concomitant]
     Dosage: .1 MILLIGRAM
     Route: 065
  18. FERROUS GLUCONATE [Concomitant]
     Dosage: 324 MILLIGRAM
     Route: 048
  19. ROXICODONE [Concomitant]
     Dosage: 5 MILLIGRAM
     Route: 065
  20. CIPROFLOXACIN HYDROCHLORIDE [Concomitant]
     Dosage: 500 MILLIGRAM
     Route: 048
  21. REVLIMID [Suspect]
     Indication: MULTIPLE MYELOMA
     Dosage: 10 MILLIGRAM
     Route: 048
     Dates: start: 20110901
  22. WARFARIN SODIUM [Concomitant]
     Dosage: 2MG +5MG
     Route: 065
  23. REVLIMID [Suspect]
     Dosage: 5 MILLIGRAM
     Route: 048
     Dates: start: 20120301
  24. COLACE [Concomitant]
     Dosage: 100 MILLIGRAM
     Route: 048
  25. RANITIDINE [Concomitant]
     Dosage: 150 MILLIGRAM
     Route: 065
  26. MIRALAX [Concomitant]
     Dosage: 17 GRAM
     Route: 048
  27. NOVOLOG MIX 70/30 [Concomitant]
     Dosage: 100UNIT/L
     Route: 058
  28. OMEPRAZOLE [Concomitant]
     Dosage: 20 MILLIGRAM
     Route: 048
  29. ARANESP [Concomitant]
     Dosage: 200 MICROGRAM
     Route: 065
  30. NYSTATIN [Concomitant]
     Route: 061

REACTIONS (5)
  - PENILE HAEMORRHAGE [None]
  - LEUKOPENIA [None]
  - PANCYTOPENIA [None]
  - THROMBOCYTOPENIA [None]
  - FATIGUE [None]
